FAERS Safety Report 9342659 (Version 3)
Quarter: 2014Q1

REPORT INFORMATION
  Report Type: Report from Study
  Country: US (occurrence: US)
  Receive Date: 20130611
  Receipt Date: 20140131
  Transmission Date: 20141002
  Serious: Yes (Hospitalization, Other)
  Sender: FDA-Public Use
  Company Number: US-BAYER-2013-069539

PATIENT
  Age: 24 Year
  Sex: Female
  Weight: 81 kg

DRUGS (29)
  1. MIRENA [Suspect]
     Indication: CONTRACEPTION
     Dosage: 20 MCG/24HR, CONT
     Route: 015
     Dates: start: 20110409
  2. DOCUSATE [Concomitant]
  3. FERROUS SULFATE [Concomitant]
  4. PRENATAL W/FOLIC ACID /02279001/ [Concomitant]
  5. DIPHENHYDRAMINE [Concomitant]
  6. IBUPROFEN [Concomitant]
     Indication: PAIN
  7. MAGNESIUM HYDROXIDE [Concomitant]
  8. ONDANSETRON [Concomitant]
  9. PERCOCET [Concomitant]
  10. SENNA [Concomitant]
  11. NARCAN [Concomitant]
  12. METRONIDAZOLE [Concomitant]
  13. NALOXONE [Concomitant]
  14. MAGNESIUM [Concomitant]
  15. GENTAMICIN [Concomitant]
  16. CEFTRIAXONE [Concomitant]
  17. VANCOMYCIN [Concomitant]
  18. ACYCLOVIR [ACICLOVIR] [Concomitant]
  19. DEXAMETHASONE [Concomitant]
  20. LASIX [Concomitant]
  21. POTASSIUM CHLORIDE [Concomitant]
  22. METOPROLOL [Concomitant]
  23. DIFLUCAN [Concomitant]
  24. COLACE [Concomitant]
  25. DOBUTAMINE [Concomitant]
  26. NICARDIPINE [Concomitant]
  27. GLYBURIDE [Concomitant]
  28. CIPRO [Concomitant]
  29. OXYTOCIN [Concomitant]

REACTIONS (19)
  - Endocarditis [None]
  - Endocarditis [None]
  - Cerebral infarction [None]
  - Cerebral artery embolism [None]
  - Cholelithiasis [None]
  - Aortic valve incompetence [None]
  - Cardiac valve replacement complication [None]
  - Pain [None]
  - Malaise [None]
  - Injury [None]
  - Chest pain [None]
  - Dyspnoea [None]
  - Aortic valve incompetence [None]
  - Psychological trauma [None]
  - Emotional distress [None]
  - Anxiety [None]
  - Anhedonia [None]
  - Off label use [None]
  - Device misuse [None]
